FAERS Safety Report 9387531 (Version 1)
Quarter: 2013Q3

REPORT INFORMATION
  Report Type: Spontaneous
  Country: US (occurrence: US)
  Receive Date: 20130708
  Receipt Date: 20130708
  Transmission Date: 20140515
  Serious: Yes (Other)
  Sender: FDA-Public Use
  Company Number: US-PFIZER INC-2013198342

PATIENT
  Age: 50 Year
  Sex: Female

DRUGS (2)
  1. CELEBREX [Suspect]
     Indication: ARTHRITIS
     Dosage: 200 MG, 1X/DAY
     Route: 048
  2. CORTISONE [Concomitant]
     Dosage: SHOT

REACTIONS (3)
  - Gallbladder disorder [Unknown]
  - Uterine disorder [Unknown]
  - Irritable bowel syndrome [Unknown]
